FAERS Safety Report 18806448 (Version 2)
Quarter: 2021Q3

REPORT INFORMATION
  Report Type: Report from Study
  Country: DE (occurrence: DE)
  Receive Date: 20210128
  Receipt Date: 20210809
  Transmission Date: 20211014
  Serious: Yes (Death, Hospitalization, Other)
  Sender: FDA-Public Use
  Company Number: NVSC2020DE268347

PATIENT
  Age: 76 Year
  Sex: Male

DRUGS (4)
  1. TRAMETINIB [Suspect]
     Active Substance: TRAMETINIB
     Indication: BRAF V600E MUTATION POSITIVE
     Dosage: 2 MG
     Route: 048
     Dates: start: 20200427, end: 20200928
  2. DABRAFENIB [Suspect]
     Active Substance: DABRAFENIB
     Indication: MALIGNANT MELANOMA
  3. TRAMETINIB [Suspect]
     Active Substance: TRAMETINIB
     Indication: MALIGNANT MELANOMA
  4. DABRAFENIB [Suspect]
     Active Substance: DABRAFENIB
     Indication: BRAF V600E MUTATION POSITIVE
     Dosage: 300 MG
     Route: 048
     Dates: start: 20200427, end: 20200928

REACTIONS (21)
  - Metastases to meninges [Unknown]
  - Dysphagia [Unknown]
  - Hiccups [Unknown]
  - Neurological decompensation [Unknown]
  - Malignant neoplasm progression [Fatal]
  - Dysaesthesia [Unknown]
  - Bladder hypertrophy [Unknown]
  - General physical health deterioration [Unknown]
  - Decubitus ulcer [Unknown]
  - Superinfection [Unknown]
  - Blood creatine phosphokinase increased [Unknown]
  - Quadriparesis [Unknown]
  - Vomiting [Not Recovered/Not Resolved]
  - Urinary retention [Unknown]
  - Hiatus hernia [Unknown]
  - Dysarthria [Unknown]
  - Malignant melanoma [Fatal]
  - Liver function test abnormal [Unknown]
  - Ileus [Unknown]
  - Aortic valve stenosis [Unknown]
  - Frequent bowel movements [Unknown]

NARRATIVE: CASE EVENT DATE: 20200929
